FAERS Safety Report 13720610 (Version 1)
Quarter: 2017Q3

REPORT INFORMATION
  Report Type: Spontaneous
  Country: US (occurrence: US)
  Receive Date: 20170705
  Receipt Date: 20170705
  Transmission Date: 20171127
  Serious: No
  Sender: FDA-Public Use
  Company Number: None

PATIENT
  Age: 38 Year
  Sex: Male

DRUGS (1)
  1. AMPYRA [Suspect]
     Active Substance: DALFAMPRIDINE
     Indication: MULTIPLE SCLEROSIS
     Route: 048
     Dates: start: 20170310

REACTIONS (3)
  - Alanine aminotransferase increased [None]
  - Blood 25-hydroxycholecalciferol decreased [None]
  - B-lymphocyte count decreased [None]

NARRATIVE: CASE EVENT DATE: 20170609
